FAERS Safety Report 9735580 (Version 2)
Quarter: 2013Q4

REPORT INFORMATION
  Report Type: Spontaneous
  Country: US (occurrence: US)
  Receive Date: 20131206
  Receipt Date: 20131206
  Transmission Date: 20140711
  Serious: No
  Sender: FDA-Public Use
  Company Number: US-GILEAD-2009-0023874

PATIENT
  Sex: Female
  Weight: 68.04 kg

DRUGS (16)
  1. LETAIRIS [Suspect]
     Indication: PULMONARY ARTERIAL HYPERTENSION
     Route: 048
     Dates: start: 20080623
  2. REVATIO [Concomitant]
  3. REGLAN [Concomitant]
  4. PROTONIX [Concomitant]
  5. ZITHROMAX [Concomitant]
  6. DIGOXIN [Concomitant]
  7. FUROSEMIDE [Concomitant]
  8. SPIRONOLACTONE [Concomitant]
  9. HYDROCHLOROTHIAZIDE [Concomitant]
  10. DIOVAN HCT [Concomitant]
  11. ALPRAZOLAM [Concomitant]
  12. LEVOTHYROXINE [Concomitant]
  13. TYLENOL-CODEINE [Concomitant]
  14. VITAMIN B12 [Concomitant]
  15. FERROUS SULFATE [Concomitant]
  16. FOLIC ACID [Concomitant]

REACTIONS (2)
  - Nausea [Unknown]
  - Diarrhoea [Unknown]
